FAERS Safety Report 7203613-7 (Version None)
Quarter: 2010Q4

REPORT INFORMATION
  Report Type: 
  Country: None (occurrence: None)
  Receive Date: 20101228
  Receipt Date: 20101228
  Transmission Date: 20110411
  Serious: Yes (Hospitalization, Disabling)
  Sender: FDA-Public Use
  Company Number: None

PATIENT
  Age: 66 Year
  Sex: Female
  Weight: 91.173 kg

DRUGS (2)
  1. FOSAMAX [Suspect]
     Indication: OSTEOPENIA
     Dosage: WEEKLY
     Dates: start: 19980501, end: 20080501
  2. BONIVA [Suspect]
     Dosage: MONTHLY
     Dates: start: 20080502, end: 20100401

REACTIONS (1)
  - STRESS FRACTURE [None]
